FAERS Safety Report 9502657 (Version 1)
Quarter: 2013Q3

REPORT INFORMATION
  Report Type: Spontaneous
  Country: US (occurrence: US)
  Receive Date: 20130906
  Receipt Date: 20130906
  Transmission Date: 20140515
  Serious: Yes (Hospitalization, Other)
  Sender: FDA-Public Use
  Company Number: US-ACCORD-019259

PATIENT
  Age: 40 Year
  Sex: Female

DRUGS (2)
  1. NALTREXONE [Suspect]
     Indication: ACCIDENTAL EXPOSURE TO PRODUCT
     Dosage: 50 MG DAILY,?NDC: 16729-0081-10
     Route: 048
     Dates: start: 20130723, end: 20130818
  2. OXYCONTIN [Concomitant]
     Indication: PAIN
     Dosage: OXYCODONE ER 40 MG DAILY, DOSE WAS INCREASED TO 120 MG DAILY DUE TO UNCONTROLLED PAIN
     Route: 048

REACTIONS (2)
  - Drug dispensing error [Recovered/Resolved]
  - Pain [Unknown]
